FAERS Safety Report 5126259-3 (Version None)
Quarter: 2006Q4

REPORT INFORMATION
  Report Type: 
  Country: None (occurrence: None)
  Receive Date: 20061012
  Receipt Date: 20061002
  Transmission Date: 20070319
  Serious: Yes (Hospitalization)
  Sender: FDA-Public Use
  Company Number: FR-ABBOTT-06P-056-0345652-00

PATIENT
  Age: 84 Year
  Sex: Male

DRUGS (6)
  1. VERCYTE [Suspect]
     Indication: THROMBOCYTOPENIA
     Route: 048
     Dates: end: 20060618
  2. VERCYTE [Suspect]
     Route: 048
  3. LEVODOPA BENSERAZIDE [Concomitant]
     Indication: DRUG USE FOR UNKNOWN INDICATION
     Route: 048
     Dates: start: 20060531, end: 20060703
  4. ASPIRIN [Concomitant]
     Indication: DRUG USE FOR UNKNOWN INDICATION
     Route: 048
  5. RAMIPRIL [Concomitant]
     Indication: DRUG USE FOR UNKNOWN INDICATION
     Route: 048
     Dates: end: 20060705
  6. GINKGO BILOBA [Concomitant]
     Indication: DRUG USE FOR UNKNOWN INDICATION
     Route: 048
     Dates: end: 20060630

REACTIONS (2)
  - ANAEMIA [None]
  - GENERAL PHYSICAL CONDITION ABNORMAL [None]
